FAERS Safety Report 25944694 (Version 1)
Quarter: 2025Q4

REPORT INFORMATION
  Report Type: Spontaneous
  Country: US (occurrence: None)
  Receive Date: 20251021
  Receipt Date: 20251021
  Transmission Date: 20260118
  Serious: Yes (Other)
  Sender: FDA-CTU
  Company Number: None

PATIENT
  Age: 59 Year
  Sex: Female

DRUGS (7)
  1. LENALIDOMIDE [Suspect]
     Active Substance: LENALIDOMIDE
     Indication: Plasma cell myeloma
     Dosage: FREQUENCY : AS DIRECTED;? ^REQ: TAKE 1 CAPSULE BY MOUTH DAILY ON DAYS 1-21 OF EACH 28-DAY CYCLE.?
     Route: 048
     Dates: start: 20250315
  2. CENTRUM SILV 50+WOMEN [Concomitant]
  3. DARZALEX [Concomitant]
     Active Substance: DARATUMUMAB
  4. DEXAMETHASONE [Concomitant]
     Active Substance: DEXAMETHASONE
  5. LENALIDOMIDE [Concomitant]
     Active Substance: LENALIDOMIDE
  6. MULTIVITAMIN ADULT [Concomitant]
  7. VELCADE [Concomitant]
     Active Substance: BORTEZOMIB

REACTIONS (2)
  - Bone marrow transplant [None]
  - Therapy cessation [None]

NARRATIVE: CASE EVENT DATE: 20250827
